FAERS Safety Report 5491452-7 (Version None)
Quarter: 2007Q4

REPORT INFORMATION
  Report Type: 
  Country: None (occurrence: None)
  Receive Date: 20071018
  Receipt Date: 20071008
  Transmission Date: 20080405
  Serious: Yes (Death, Life-Threatening, Other)
  Sender: FDA-Public Use
  Company Number: 2007US002490

PATIENT
  Age: 51 Year
  Sex: Male

DRUGS (3)
  1. PROGRAF [Suspect]
     Indication: HEART TRANSPLANT
     Dosage: 7 MG, BID, ORAL
     Route: 048
  2. PREDNISONE TAB [Suspect]
     Indication: HEART TRANSPLANT
     Dosage: 10 MG, UID/QD, ORAL
     Route: 048
  3. MYCOPHENOLATE MOFETIL [Suspect]
     Indication: HEART TRANSPLANT
     Dosage: 750 MG, BID, ORAL
     Route: 048

REACTIONS (10)
  - ARRHYTHMIA [None]
  - CYTOMEGALOVIRUS ANTIBODY POSITIVE [None]
  - CYTOMEGALOVIRUS INFECTION [None]
  - DRUG TOXICITY [None]
  - KIDNEY FIBROSIS [None]
  - NOCARDIOSIS [None]
  - POLYOMAVIRUS-ASSOCIATED NEPHROPATHY [None]
  - RENAL FAILURE [None]
  - RENAL TUBULAR ATROPHY [None]
  - TRANSPLANT REJECTION [None]
